FAERS Safety Report 12906864 (Version 1)
Quarter: 2016Q4

REPORT INFORMATION
  Report Type: Report from Study
  Country: None (occurrence: DE)
  Receive Date: 20161103
  Receipt Date: 20161103
  Transmission Date: 20170207
  Serious: Yes (Hospitalization)
  Sender: FDA-Public Use
  Company Number: DE-ABBVIE-16K-062-1765879-00

PATIENT
  Sex: Male
  Weight: 71 kg

DRUGS (6)
  1. PHENPROCOUMON [Concomitant]
     Active Substance: PHENPROCOUMON
     Indication: THROMBOSIS PROPHYLAXIS
     Route: 048
  2. DUODOPA [Suspect]
     Active Substance: CARBIDOPA\LEVODOPA
     Indication: PARKINSON^S DISEASE
     Route: 050
  3. MACROGOL [Concomitant]
     Active Substance: POLYETHYLENE GLYCOLS
     Indication: CONSTIPATION
     Route: 048
  4. PALEXIA [Concomitant]
     Active Substance: TAPENTADOL HYDROCHLORIDE
     Indication: PAIN
     Route: 048
     Dates: start: 20160901
  5. MIRTAZAPINE. [Concomitant]
     Active Substance: MIRTAZAPINE
     Indication: DEPRESSION
     Dates: start: 20160401
  6. NOVAMIN [Concomitant]
     Active Substance: PROCHLORPERAZINE MALEATE
     Indication: PAIN
     Dates: start: 20161010

REACTIONS (5)
  - Fall [Recovered/Resolved]
  - Mobility decreased [Recovered/Resolved]
  - Pain [Unknown]
  - Gait disturbance [Recovered/Resolved]
  - Urinary tract infection [Unknown]

NARRATIVE: CASE EVENT DATE: 20161010
